FAERS Safety Report 5813597-1 (Version None)
Quarter: 2008Q3

REPORT INFORMATION
  Report Type: 
  Country: None (occurrence: None)
  Receive Date: 20080714
  Receipt Date: 20080630
  Transmission Date: 20090109
  Serious: Yes (Hospitalization)
  Sender: FDA-Public Use
  Company Number: 2007BI013671

PATIENT
  Age: 60 Year
  Sex: Female

DRUGS (2)
  1. AVONEX [Suspect]
     Indication: MULTIPLE SCLEROSIS
     Dosage: 30 UG; QW; IM; IM
     Route: 030
     Dates: start: 20010215
  2. AVONEX [Suspect]
     Indication: MULTIPLE SCLEROSIS
     Dosage: 30 UG; QW; IM; IM
     Route: 030
     Dates: start: 20070101

REACTIONS (7)
  - CYSTITIS PSEUDOMONAL [None]
  - DECUBITUS ULCER [None]
  - IMPAIRED GASTRIC EMPTYING [None]
  - NEPHROLITHIASIS [None]
  - STAPHYLOCOCCAL INFECTION [None]
  - URINARY TRACT INFECTION [None]
  - VOMITING [None]
